FAERS Safety Report 24147436 (Version 1)
Quarter: 2024Q3

REPORT INFORMATION
  Report Type: Spontaneous
  Country: BR (occurrence: BR)
  Receive Date: 20240729
  Receipt Date: 20240729
  Transmission Date: 20241017
  Serious: Yes (Death, Hospitalization)
  Sender: PFIZER
  Company Number: BR-PFIZER INC-2017268592

PATIENT
  Age: 75 Year
  Sex: Male

DRUGS (1)
  1. SUTENT [Suspect]
     Active Substance: SUNITINIB MALATE
     Dosage: 50 MG
     Dates: start: 20170619

REACTIONS (8)
  - Neoplasm progression [Fatal]
  - Weight decreased [Unknown]
  - Feeding disorder [Unknown]
  - Dysentery [Unknown]
  - Blood disorder [Unknown]
  - Haemorrhage [Unknown]
  - Skin exfoliation [Unknown]
  - Blood pressure increased [Unknown]

NARRATIVE: CASE EVENT DATE: 20170622
